FAERS Safety Report 21943399 (Version 1)
Quarter: 2023Q1

REPORT INFORMATION
  Report Type: Spontaneous
  Country: US (occurrence: US)
  Receive Date: 20230202
  Receipt Date: 20230202
  Transmission Date: 20230417
  Serious: Yes (Other)
  Sender: FDA-Public Use
  Company Number: US-TEVA-2023-US-2851895

PATIENT
  Sex: Female

DRUGS (2)
  1. ESTRADIOL [Suspect]
     Active Substance: ESTRADIOL
     Indication: Product used for unknown indication
     Dosage: 1 MILLIGRAM
     Route: 065
     Dates: end: 20221202
  2. ESTRADIOL [Suspect]
     Active Substance: ESTRADIOL
     Dosage: 2 MILLIGRAM
     Route: 065
     Dates: end: 20221202

REACTIONS (3)
  - Cerebrovascular accident [Unknown]
  - Headache [Unknown]
  - Gait disturbance [Unknown]
